FAERS Safety Report 9239559 (Version 1)
Quarter: 2013Q2

REPORT INFORMATION
  Report Type: Spontaneous
  Country: US (occurrence: US)
  Receive Date: 20130418
  Receipt Date: 20130418
  Transmission Date: 20140414
  Serious: Yes (Hospitalization)
  Sender: FDA-Public Use
  Company Number: US-PFIZER INC-2013120567

PATIENT
  Age: 33 Year
  Sex: Female
  Weight: 104 kg

DRUGS (6)
  1. SOLU-MEDROL [Suspect]
     Indication: TREMOR
     Dosage: UNK
  2. SOLU-MEDROL [Suspect]
     Indication: PARAESTHESIA
  3. REBIF [Suspect]
     Indication: MULTIPLE SCLEROSIS
     Dosage: 44 UG, (3 TIMES PER WEEK)
     Route: 058
     Dates: start: 20100309
  4. REBIF [Suspect]
     Dosage: 44 UG, (3 TIMES PER WEEK)
     Route: 058
     Dates: start: 20100518
  5. ULTRAM [Concomitant]
     Indication: HEADACHE
     Dosage: 50 MG, AS NEEDED
     Route: 048
     Dates: start: 20100506
  6. TOPAMAX [Concomitant]
     Indication: HEADACHE
     Dosage: 50 MG, 2X/DAY
     Dates: start: 20100705

REACTIONS (9)
  - Blood glucose increased [Recovered/Resolved]
  - Hypertension [Recovered/Resolved]
  - Drug ineffective [Unknown]
  - Muscular weakness [Unknown]
  - Tremor [Unknown]
  - Pain in extremity [Unknown]
  - Paraesthesia [Unknown]
  - Hypoaesthesia [Unknown]
  - Malaise [Unknown]
